FAERS Safety Report 15338778 (Version 1)
Quarter: 2018Q3

REPORT INFORMATION
  Report Type: Spontaneous
  Country: US (occurrence: US)
  Receive Date: 20180831
  Receipt Date: 20180831
  Transmission Date: 20181010
  Serious: No
  Sender: FDA-Public Use
  Company Number: US-MYLANLABS-2018M1064255

PATIENT
  Sex: Female

DRUGS (3)
  1. PAROXETINE EXTENDED?RELEASE TABLETS USP [Suspect]
     Active Substance: PAROXETINE
     Indication: DEPRESSION
     Dosage: 12.5 MG, BID
     Route: 048
  2. PAROXETINE EXTENDED?RELEASE TABLETS USP [Suspect]
     Active Substance: PAROXETINE
     Indication: ANXIETY
  3. METFORMIN [Concomitant]
     Active Substance: METFORMIN HYDROCHLORIDE
     Indication: PRODUCT USED FOR UNKNOWN INDICATION
     Dosage: UNK
     Route: 065

REACTIONS (8)
  - Joint range of motion decreased [Not Recovered/Not Resolved]
  - Eye disorder [Not Recovered/Not Resolved]
  - Fatigue [Unknown]
  - Bladder pain [Not Recovered/Not Resolved]
  - Ill-defined disorder [Not Recovered/Not Resolved]
  - Blood glucose fluctuation [Unknown]
  - Malaise [Recovered/Resolved]
  - Limb injury [Not Recovered/Not Resolved]

NARRATIVE: CASE EVENT DATE: 201808
